FAERS Safety Report 5579438-5 (Version None)
Quarter: 2007Q4

REPORT INFORMATION
  Report Type: 
  Country: None (occurrence: None)
  Receive Date: 20071130
  Receipt Date: 20070628
  Transmission Date: 20080405
  Serious: No
  Sender: FDA-Public Use
  Company Number: US200707001132

PATIENT
  Age: 45 Year
  Sex: Male

DRUGS (3)
  1. BYETTA [Suspect]
     Indication: DIABETES MELLITUS
     Dosage: 10 UG, 2/D, SUBCUTANEOUS ; 5 UG, 2/D, SUBCUTANEOUS
     Route: 058
     Dates: start: 20060101, end: 20070627
  2. HUMALOG [Concomitant]
  3. LANTUS [Concomitant]

REACTIONS (2)
  - DRUG INTOLERANCE [None]
  - UNEVALUABLE EVENT [None]
